FAERS Safety Report 8606937-1 (Version None)
Quarter: 2012Q3

REPORT INFORMATION
  Report Type: 
  Country: None (occurrence: None)
  Receive Date: 20120820
  Receipt Date: 20120810
  Transmission Date: 20120928
  Serious: Yes (Hospitalization)
  Sender: FDA-Public Use
  Company Number: JP-ALLERGAN-1210840US

PATIENT
  Age: 33 Year
  Sex: Female

DRUGS (2)
  1. DEPAKENE [Concomitant]
     Indication: CONVULSION
     Route: 048
     Dates: start: 20120718
  2. BOTOX [Suspect]
     Indication: MUSCLE SPASMS
     Dosage: UNK UNK, SINGLE
     Route: 030
     Dates: start: 20120718, end: 20120718

REACTIONS (5)
  - VOMITING [None]
  - DYSPHAGIA [None]
  - NYSTAGMUS [None]
  - CONVULSION [None]
  - HETEROPHORIA [None]
